FAERS Safety Report 10056127 (Version 4)
Quarter: 2014Q2

REPORT INFORMATION
  Report Type: Report from Study
  Country: CA (occurrence: CA)
  Receive Date: 20140403
  Receipt Date: 20140520
  Transmission Date: 20141212
  Serious: Yes (Hospitalization)
  Sender: FDA-Public Use
  Company Number: CA-ROCHE-1377309

PATIENT
  Age: 48 Year
  Sex: Male
  Weight: 107.4 kg

DRUGS (1)
  1. VISMODEGIB [Suspect]
     Indication: BASAL CELL CARCINOMA
     Dosage: LAST DOSE PRIOR TO SAE 03/OCT/2013.
     Route: 048
     Dates: start: 20130925, end: 20131003

REACTIONS (1)
  - Pancreatitis acute [Recovered/Resolved]
